FAERS Safety Report 12454104 (Version 1)
Quarter: 2016Q2

REPORT INFORMATION
  Report Type: Spontaneous
  Country: JP (occurrence: JP)
  Receive Date: 20160610
  Receipt Date: 20160610
  Transmission Date: 20160815
  Serious: Yes (Hospitalization)
  Sender: FDA-Public Use
  Company Number: JP-ORION CORPORATION ORION PHARMA-ENT 2016-0057

PATIENT
  Age: 77 Year
  Sex: Male

DRUGS (16)
  1. BI-SIFROL [Concomitant]
     Active Substance: PRAMIPEXOLE
     Route: 065
     Dates: end: 20160518
  2. GLUCOSE [Concomitant]
     Active Substance: DEXTROSE
     Route: 065
     Dates: start: 20160423, end: 20160506
  3. MENESIT [Concomitant]
     Active Substance: CARBIDOPA\LEVODOPA
     Route: 065
  4. SOLDEM [Concomitant]
     Active Substance: DEXTROSE\POTASSIUM CHLORIDE\SODIUM CHLORIDE\SODIUM LACTATE
     Route: 065
     Dates: start: 20160517
  5. DALACIN [Concomitant]
     Active Substance: CLINDAMYCIN\CLINDAMYCIN PHOSPHATE
     Route: 065
     Dates: start: 20160427, end: 20160506
  6. COMTAN [Suspect]
     Active Substance: ENTACAPONE
     Route: 048
     Dates: start: 20150518
  7. EDIROL [Concomitant]
     Active Substance: ELDECALCITOL
     Route: 065
  8. QUETIAPINE. [Concomitant]
     Active Substance: QUETIAPINE
     Route: 065
  9. FP-OD [Concomitant]
     Active Substance: SELEGILINE HYDROCHLORIDE
     Route: 065
  10. YODEL [Concomitant]
     Active Substance: SENNA LEAF
     Route: 065
  11. TRAZODONE [Concomitant]
     Active Substance: TRAZODONE HYDROCHLORIDE
     Route: 065
  12. MIRAPEX [Concomitant]
     Active Substance: PRAMIPEXOLE DIHYDROCHLORIDE
     Route: 065
     Dates: end: 20160518
  13. BROTIZOLAM [Concomitant]
     Active Substance: BROTIZOLAM
     Route: 065
  14. COMTAN [Suspect]
     Active Substance: ENTACAPONE
     Indication: PARKINSON^S DISEASE
     Route: 048
     Dates: end: 20150517
  15. MAGMITT [Concomitant]
     Active Substance: MAGNESIUM OXIDE
     Route: 065
  16. LEVOFLOXACIN. [Concomitant]
     Active Substance: LEVOFLOXACIN
     Route: 065
     Dates: start: 20160419, end: 20160422

REACTIONS (2)
  - Decubitus ulcer [Unknown]
  - Anaemia macrocytic [Not Recovered/Not Resolved]

NARRATIVE: CASE EVENT DATE: 20160422
